FAERS Safety Report 9456035 (Version 1)
Quarter: 2013Q3

REPORT INFORMATION
  Report Type: Spontaneous
  Country: US (occurrence: US)
  Receive Date: 20130813
  Receipt Date: 20130813
  Transmission Date: 20140515
  Serious: Yes (Death, Other)
  Sender: FDA-Public Use
  Company Number: PHHY2013US086265

PATIENT
  Age: 84 Year
  Sex: Male

DRUGS (1)
  1. TICLOPIDINE [Suspect]
     Indication: ANTIPLATELET THERAPY

REACTIONS (6)
  - Death [Fatal]
  - Thrombotic microangiopathy [Unknown]
  - Thrombocytopenia [Unknown]
  - Red blood cell schistocytes present [Unknown]
  - Blood lactate dehydrogenase increased [Unknown]
  - Renal impairment [Unknown]
